FAERS Safety Report 7213028-3 (Version None)
Quarter: 2011Q1

REPORT INFORMATION
  Report Type: 
  Country: None (occurrence: None)
  Receive Date: 20110106
  Receipt Date: 20101228
  Transmission Date: 20110831
  Serious: Yes (Death, Life-Threatening)
  Sender: FDA-Public Use
  Company Number: B0683408A

PATIENT
  Sex: Female
  Weight: 36.3 kg

DRUGS (71)
  1. XYLOCAINE [Concomitant]
     Dosage: 10ML PER DAY
     Dates: start: 20071107, end: 20071107
  2. SEISHOKU [Concomitant]
     Dosage: 100ML PER DAY
     Route: 042
     Dates: start: 20071102, end: 20071126
  3. PROGRAF [Concomitant]
     Dosage: .4MG PER DAY
     Route: 042
     Dates: start: 20071105, end: 20071126
  4. LASTET [Concomitant]
     Dosage: 35MG PER DAY
     Route: 042
     Dates: start: 20071201, end: 20071201
  5. GLUCOSE [Concomitant]
     Dosage: 100ML PER DAY
     Route: 042
     Dates: start: 20071201, end: 20071201
  6. ASTOMIN [Concomitant]
     Dosage: 30MG PER DAY
     Route: 048
     Dates: start: 20071120, end: 20071202
  7. ECOLICIN [Concomitant]
     Route: 047
     Dates: start: 20071126, end: 20071126
  8. SOLITA-T3 [Concomitant]
     Route: 048
     Dates: start: 20071128
  9. ENTERONON-R [Concomitant]
     Dosage: 3G PER DAY
     Route: 048
     Dates: start: 20071130, end: 20071213
  10. MEYLON [Concomitant]
     Dosage: 120ML PER DAY
     Route: 042
     Dates: start: 20071103, end: 20071105
  11. PENTCILLIN [Concomitant]
     Dosage: 3G PER DAY
     Route: 042
     Dates: start: 20071104, end: 20071111
  12. HAPTOGLOBIN [Concomitant]
     Dosage: 1IUAX PER DAY
     Route: 042
     Dates: start: 20071107, end: 20071107
  13. FRAGMIN [Concomitant]
     Dosage: 3ML PER DAY
     Dates: start: 20071108, end: 20071126
  14. HABEKACIN [Concomitant]
     Dosage: 75MG PER DAY
     Route: 042
     Dates: start: 20071116, end: 20071125
  15. NEUART [Concomitant]
     Route: 042
     Dates: start: 20071120, end: 20071122
  16. CORTROSYN [Concomitant]
     Dosage: .25MG PER DAY
     Route: 042
     Dates: start: 20071126, end: 20071126
  17. TACROLIMUS [Concomitant]
     Indication: IMMUNOSUPPRESSION
     Dosage: .4MG PER DAY
     Route: 065
     Dates: start: 20071105
  18. URSO 250 [Concomitant]
     Dosage: 300MG PER DAY
     Route: 048
     Dates: start: 20071102, end: 20071129
  19. FLUMETHOLON [Concomitant]
     Route: 031
     Dates: start: 20071106, end: 20071106
  20. SOLITA-T [Concomitant]
     Dosage: 3000ML PER DAY
     Route: 042
     Dates: start: 20071103, end: 20071126
  21. HEPARIN [Concomitant]
     Dosage: 3ML PER DAY
     Route: 042
     Dates: start: 20071103, end: 20071107
  22. AZUNOL [Concomitant]
     Dosage: 20G PER DAY
     Route: 003
     Dates: start: 20071105, end: 20071127
  23. OFLOXACIN [Concomitant]
     Route: 031
     Dates: start: 20071105, end: 20071106
  24. INOVAN [Concomitant]
     Dosage: 40MG PER DAY
     Route: 042
     Dates: start: 20071122, end: 20071125
  25. ALKERAN [Suspect]
     Indication: ALLOGENIC BONE MARROW TRANSPLANTATION THERAPY
     Dosage: 70MG PER DAY
     Route: 042
     Dates: start: 20071104, end: 20071105
  26. CALONAL [Concomitant]
     Dosage: 200MG PER DAY
     Route: 048
     Dates: start: 20071105, end: 20071124
  27. DISTILLED WATER [Concomitant]
     Route: 065
     Dates: start: 20071107, end: 20071107
  28. NICOTINE POLACRILEX [Concomitant]
     Dosage: 3IUAX PER DAY
     Dates: start: 20071109, end: 20071115
  29. MARZULENE-S [Concomitant]
     Dosage: 2.1G PER DAY
     Dates: start: 20071130, end: 20071213
  30. FLAGYL [Concomitant]
     Dosage: 1IUAX PER DAY
     Route: 048
     Dates: start: 20071201, end: 20071213
  31. AMIKACIN SULFATE [Concomitant]
     Dosage: 160MG PER DAY
     Route: 042
     Dates: start: 20071104, end: 20071115
  32. ZOVIRAX [Concomitant]
     Dosage: 600MG PER DAY
     Route: 042
     Dates: start: 20071104, end: 20071126
  33. PROTEAMIN [Concomitant]
     Dosage: 100ML PER DAY
     Dates: start: 20071105, end: 20071126
  34. WATER [Concomitant]
     Dosage: 500ML PER DAY
     Dates: start: 20071105
  35. UNKNOWN [Concomitant]
     Dosage: 1000ML PER DAY
     Dates: start: 20071105, end: 20071126
  36. ELEMENMIC [Concomitant]
     Dosage: 2ML PER DAY
     Dates: start: 20071105, end: 20071126
  37. SODIUM CHLORIDE [Concomitant]
     Dosage: 80ML PER DAY
     Route: 042
     Dates: start: 20071106, end: 20071112
  38. ATARAX [Concomitant]
     Dosage: 25MG PER DAY
     Route: 042
     Dates: start: 20071107, end: 20071107
  39. VANCOMYCIN [Suspect]
     Route: 042
     Dates: start: 20071114, end: 20071115
  40. VALTREX [Concomitant]
     Dosage: 1000MG PER DAY
     Route: 048
     Dates: start: 20071102, end: 20071108
  41. GENTACIN [Concomitant]
     Dosage: 10G PER DAY
     Route: 003
     Dates: start: 20071105, end: 20071105
  42. HACHIAZULE [Concomitant]
     Dates: start: 20071107, end: 20071107
  43. SOLU-CORTEF [Concomitant]
     Dosage: 100MG PER DAY
     Route: 042
     Dates: start: 20071104, end: 20071107
  44. PRODIF [Concomitant]
     Dosage: 200MG PER DAY
     Route: 042
     Dates: start: 20071104, end: 20071111
  45. POTASSIUM CHLORIDE [Concomitant]
     Dosage: 10ML PER DAY
     Dates: start: 20071105, end: 20071107
  46. MAGNESIUM SULFATE [Concomitant]
     Dosage: 14ML PER DAY
     Dates: start: 20071108, end: 20071126
  47. UROKINASE [Concomitant]
     Dosage: 1IUAX PER DAY
     Route: 042
     Dates: start: 20071108, end: 20071108
  48. MEROPENEM [Concomitant]
     Dosage: 500MG PER DAY
     Route: 042
     Dates: start: 20071116, end: 20071126
  49. ALBUMIN (HUMAN) [Concomitant]
     Dosage: 20ML PER DAY
     Route: 042
     Dates: start: 20071122, end: 20071123
  50. NOVOSEVEN [Concomitant]
     Route: 042
  51. LYMPHOGLOBULINE [Suspect]
     Indication: ALLOGENIC BONE MARROW TRANSPLANTATION THERAPY
     Dosage: 10MGM2 PER DAY
     Route: 042
     Dates: start: 20071104, end: 20071105
  52. METHOTREXATE [Concomitant]
     Indication: IMMUNOSUPPRESSION
     Dosage: 6MG TWICE PER DAY
     Route: 065
     Dates: start: 20071106, end: 20071110
  53. DIFLUCAN [Concomitant]
     Dosage: 200MG PER DAY
     Route: 048
     Dates: start: 20071102, end: 20071108
  54. PREDONINE [Concomitant]
     Route: 048
     Dates: start: 20071102, end: 20071103
  55. CHINESE MEDICINE [Concomitant]
     Dosage: 7.5G PER DAY
     Route: 048
     Dates: start: 20071102, end: 20071107
  56. BAKTAR [Concomitant]
     Dosage: 2IUAX PER DAY
     Route: 048
     Dates: start: 20071102, end: 20071125
  57. TRIAMCINOLONE [Concomitant]
     Route: 003
     Dates: start: 20071117, end: 20071126
  58. KYTRIL [Concomitant]
     Dosage: 3MG PER DAY
     Route: 042
     Dates: start: 20071102, end: 20071110
  59. SOLU-MEDROL [Concomitant]
     Dosage: 72MG PER DAY
     Route: 042
     Dates: start: 20071105, end: 20071115
  60. MULTI-VITAMINS [Concomitant]
     Dosage: 1IUAX PER DAY
     Dates: start: 20071105, end: 20071126
  61. GAMMAGARD [Concomitant]
     Dosage: 100ML SEVEN TIMES PER DAY
     Route: 042
     Dates: start: 20071106, end: 20071120
  62. CARBENIN [Concomitant]
     Dosage: 1.5G PER DAY
     Route: 042
     Dates: start: 20071111, end: 20071116
  63. FUNGUARD [Concomitant]
     Dosage: 100MG PER DAY
     Route: 042
     Dates: start: 20071111, end: 20071126
  64. TARGOCID [Concomitant]
     Dosage: 600MG PER DAY
     Route: 042
     Dates: start: 20071125, end: 20071126
  65. FLUDARA [Suspect]
     Indication: ALLOGENIC BONE MARROW TRANSPLANTATION THERAPY
     Dosage: 30MGM2 PER DAY
     Route: 042
     Dates: start: 20071102, end: 20071105
  66. VANCOMYCIN [Suspect]
     Route: 042
     Dates: start: 20071116, end: 20071116
  67. NEU-UP [Concomitant]
     Dosage: 250MCG PER DAY
     Route: 042
     Dates: start: 20071116, end: 20071212
  68. HYALEIN [Concomitant]
     Dosage: 10ML PER DAY
     Route: 031
     Dates: start: 20071102, end: 20071102
  69. RESTAMIN [Concomitant]
     Dosage: 30G PER DAY
     Route: 003
     Dates: start: 20071105, end: 20071105
  70. TAGAMET [Concomitant]
     Route: 042
     Dates: start: 20071122, end: 20071125
  71. FUROSEMIDE [Concomitant]
     Dosage: 10MG PER DAY
     Route: 042
     Dates: start: 20071123, end: 20071123

REACTIONS (7)
  - FEBRILE NEUTROPENIA [None]
  - SEPSIS [None]
  - PNEUMONIA [None]
  - RENAL FAILURE ACUTE [None]
  - HAEMORRHAGE INTRACRANIAL [None]
  - SHOCK [None]
  - ACUTE RESPIRATORY DISTRESS SYNDROME [None]
